FAERS Safety Report 25874600 (Version 2)
Quarter: 2025Q4

REPORT INFORMATION
  Report Type: Spontaneous
  Country: EU (occurrence: EU)
  Receive Date: 20251002
  Receipt Date: 20251111
  Transmission Date: 20260118
  Serious: Yes (Death, Other)
  Sender: TEVA
  Company Number: None

PATIENT
  Age: 73 Year
  Sex: Male
  Weight: 70 kg

DRUGS (1)
  1. PREGABALIN [Suspect]
     Active Substance: PREGABALIN
     Indication: Pain
     Dosage: 1 {DF} = 1 HARD CAPSULE; PREGABALIN PLIVA
     Route: 048
     Dates: start: 202507, end: 20250819

REACTIONS (2)
  - Completed suicide [Fatal]
  - Abnormal behaviour [Fatal]

NARRATIVE: CASE EVENT DATE: 20250720
